FAERS Safety Report 16526285 (Version 2)
Quarter: 2019Q3

REPORT INFORMATION
  Report Type: Spontaneous
  Country: JP (occurrence: JP)
  Receive Date: 20190703
  Receipt Date: 20190729
  Transmission Date: 20191004
  Serious: Yes (Other)
  Sender: FDA-Public Use
  Company Number: JP-SAKK-2019SA176173AA

PATIENT
  Age: 47 Year
  Sex: Female

DRUGS (1)
  1. ZALTRAP [Suspect]
     Active Substance: ZIV-AFLIBERCEPT
     Indication: COLON CANCER
     Route: 041

REACTIONS (3)
  - Anastomotic complication [Unknown]
  - Impaired healing [Unknown]
  - Suture rupture [Unknown]
